FAERS Safety Report 12262791 (Version 1)
Quarter: 2016Q2

REPORT INFORMATION
  Report Type: Report from Study
  Country: ES (occurrence: ES)
  Receive Date: 20160413
  Receipt Date: 20160413
  Transmission Date: 20160815
  Serious: Yes (Death, Other)
  Sender: FDA-Public Use
  Company Number: ES-CELGENE-144-21880-14024360

PATIENT

DRUGS (3)
  1. CYCLOPHOSPHAMIDE. [Suspect]
     Active Substance: CYCLOPHOSPHAMIDE
     Indication: PLASMA CELL MYELOMA
     Route: 065
  2. REVLIMID [Suspect]
     Active Substance: LENALIDOMIDE
     Indication: PLASMA CELL MYELOMA
     Route: 048
  3. PREDNISONE. [Suspect]
     Active Substance: PREDNISONE
     Indication: PLASMA CELL MYELOMA
     Route: 065

REACTIONS (18)
  - Infection [Unknown]
  - Decreased appetite [Unknown]
  - Liver disorder [Unknown]
  - Cerebrovascular accident [Unknown]
  - Renal disorder [Unknown]
  - Depression [Unknown]
  - Nausea [Unknown]
  - Rash [Unknown]
  - Hyperglycaemia [Unknown]
  - Disease progression [Unknown]
  - Diarrhoea [Unknown]
  - Neutropenia [Unknown]
  - Deep vein thrombosis [Unknown]
  - Neuropathy peripheral [Unknown]
  - Intestinal ischaemia [Fatal]
  - Mucosal inflammation [Unknown]
  - Thrombocytopenia [Unknown]
  - Vomiting [Unknown]
